FAERS Safety Report 20526042 (Version 1)
Quarter: 2022Q1

REPORT INFORMATION
  Report Type: Spontaneous
  Country: US (occurrence: US)
  Receive Date: 20220228
  Receipt Date: 20220228
  Transmission Date: 20220423
  Serious: Yes (Other)
  Sender: FDA-Public Use
  Company Number: US-Fresenius Kabi-FK202202220

PATIENT
  Age: 68 Year
  Sex: Female

DRUGS (3)
  1. OXALIPLATIN [Suspect]
     Active Substance: OXALIPLATIN
     Indication: Colon cancer
     Dosage: 12 CYCLES OF A MODIFIED FOLFOX6
  2. LEUCOVORIN CALCIUM [Concomitant]
     Active Substance: LEUCOVORIN CALCIUM
     Indication: Colon cancer
     Dosage: FOLINIC-ACID [LEUCOVORIN CALCIUM]?12 CYCLES OF A MODIFIED FOLFOX6
  3. FLUOROURACIL [Concomitant]
     Active Substance: FLUOROURACIL
     Indication: Colon cancer
     Dosage: 12 CYCLES OF A MODIFIED FOLFOX6

REACTIONS (4)
  - Splenomegaly [Unknown]
  - Portal vein occlusion [Unknown]
  - Non-cirrhotic portal hypertension [Unknown]
  - Thrombocytopenia [Unknown]
